FAERS Safety Report 21712216 (Version 1)
Quarter: 2022Q4

REPORT INFORMATION
  Report Type: Spontaneous
  Country: US (occurrence: US)
  Receive Date: 20221212
  Receipt Date: 20221212
  Transmission Date: 20230112
  Serious: No
  Sender: FDA-Public Use
  Company Number: US-ORG100016242-2022002881

PATIENT
  Sex: Male
  Weight: 108.9 kg

DRUGS (6)
  1. EXPAREL [Suspect]
     Active Substance: BUPIVACAINE
     Indication: Knee arthroplasty
     Route: 050
     Dates: start: 20220928, end: 20220928
  2. MARCAINE [Concomitant]
     Active Substance: BUPIVACAINE HYDROCHLORIDE
     Indication: Knee arthroplasty
     Route: 050
     Dates: start: 20220928, end: 20220928
  3. CHLORAPREP [Concomitant]
     Active Substance: CHLORHEXIDINE GLUCONATE\ISOPROPYL ALCOHOL
     Indication: Preoperative care
     Dosage: CHLOROPREP WAS USED PRE-OP (SURGICAL PREPERATION)
     Dates: start: 20220928, end: 20220928
  4. Normal saline 0.9% [Concomitant]
     Indication: Knee arthroplasty
     Route: 050
     Dates: start: 20220928, end: 20220928
  5. PEPCID [Concomitant]
     Active Substance: FAMOTIDINE
     Indication: Preoperative care
     Dosage: PRE-OP
     Route: 048
     Dates: start: 20220928, end: 20220928
  6. DECADRON [Concomitant]
     Active Substance: DEXAMETHASONE
     Indication: Intraoperative care
     Dosage: INTRA-OP
     Route: 042
     Dates: start: 20220928, end: 20220928

REACTIONS (1)
  - Injection site urticaria [Recovered/Resolved]

NARRATIVE: CASE EVENT DATE: 20220928
